FAERS Safety Report 10401730 (Version 1)
Quarter: 2014Q3

REPORT INFORMATION
  Report Type: Spontaneous
  Country: DE (occurrence: DE)
  Receive Date: 20140822
  Receipt Date: 20140822
  Transmission Date: 20150326
  Serious: Yes (Other)
  Sender: FDA-Public Use
  Company Number: DE-CELGENEUS-062-21660-14082834

PATIENT
  Sex: Male

DRUGS (7)
  1. G-CSF [Concomitant]
     Active Substance: FILGRASTIM
     Indication: ADENOCARCINOMA PANCREAS
     Route: 065
  2. ABRAXANE [Suspect]
     Active Substance: PACLITAXEL
     Route: 041
  3. GEMCITABINE [Suspect]
     Active Substance: GEMCITABINE\GEMCITABINE HYDROCHLORIDE
     Indication: ADENOCARCINOMA PANCREAS
     Route: 065
     Dates: start: 201307
  4. ABRAXANE [Suspect]
     Active Substance: PACLITAXEL
     Route: 041
  5. ABRAXANE [Suspect]
     Active Substance: PACLITAXEL
     Indication: ADENOCARCINOMA PANCREAS
     Route: 041
     Dates: start: 201307
  6. ABRAXANE [Suspect]
     Active Substance: PACLITAXEL
     Route: 041
     Dates: start: 201307
  7. ABRAXANE [Suspect]
     Active Substance: PACLITAXEL
     Route: 041

REACTIONS (6)
  - Neutropenia [Unknown]
  - Polyneuropathy [Unknown]
  - Transaminases increased [Unknown]
  - Cholangitis [Unknown]
  - Blood bilirubin increased [Unknown]
  - Alopecia [Unknown]
